FAERS Safety Report 22218911 (Version 6)
Quarter: 2023Q2

REPORT INFORMATION
  Report Type: Spontaneous
  Country: US (occurrence: US)
  Receive Date: 20230417
  Receipt Date: 20230628
  Transmission Date: 20230722
  Serious: No
  Sender: FDA-Public Use
  Company Number: US-PFIZER INC-202300146150

PATIENT
  Age: 18 Month
  Sex: Female
  Weight: 9.979 kg

DRUGS (2)
  1. SOMATROPIN [Suspect]
     Active Substance: SOMATROPIN
     Indication: Prader-Willi syndrome
     Dosage: 0.4 MG, ALTERNATE DAY (EVERY OTHER NIGHT BY INJECTION)
     Dates: start: 2022
  2. SOMATROPIN [Suspect]
     Active Substance: SOMATROPIN
     Dosage: 0.6 MG, ALTERNATE DAY (ONCLE DAILY)

REACTIONS (2)
  - Poor quality device used [Unknown]
  - Device issue [Unknown]
